FAERS Safety Report 9289993 (Version 3)
Quarter: 2013Q4

REPORT INFORMATION
  Report Type: Report from Study
  Country: CA (occurrence: CA)
  Receive Date: 20130515
  Receipt Date: 20131105
  Transmission Date: 20140711
  Serious: Yes (Hospitalization)
  Sender: FDA-Public Use
  Company Number: CA-JNJFOC-20130505996

PATIENT
  Age: 61 Year
  Sex: Male
  Weight: 102 kg

DRUGS (16)
  1. REMICADE [Suspect]
     Indication: RHEUMATOID ARTHRITIS
     Route: 042
     Dates: start: 20090801
  2. REMICADE [Suspect]
     Indication: CROHN^S DISEASE
     Route: 042
     Dates: start: 20090801
  3. METHOTREXATE [Concomitant]
     Route: 065
  4. CRESTON [Concomitant]
     Route: 065
  5. HYDROMORPHONE [Concomitant]
     Route: 065
  6. GLICLAZIDE [Concomitant]
     Route: 065
  7. HYZAAR [Concomitant]
     Dosage: LOSARTAN 50MG AND HYDROCHLOROTHIAZIDE 12.5MG
     Route: 065
  8. ALTACE [Concomitant]
     Route: 065
  9. ATENOLOL [Concomitant]
     Route: 065
  10. RENEDIL [Concomitant]
     Route: 065
  11. MELOXICAM [Concomitant]
     Route: 065
  12. CALCIUM [Concomitant]
     Route: 065
  13. FLUVOXAMINE [Concomitant]
     Route: 065
  14. FERROUS SULPHATE [Concomitant]
     Route: 065
  15. FOLIC ACID [Concomitant]
     Route: 065
  16. BETOPTIC [Concomitant]
     Route: 065

REACTIONS (4)
  - Colectomy [Recovered/Resolved]
  - Enterostomy [Recovered/Resolved]
  - Stoma site abscess [Unknown]
  - Adverse event [Unknown]
